FAERS Safety Report 8251303-4 (Version None)
Quarter: 2012Q2

REPORT INFORMATION
  Report Type: 
  Country: None (occurrence: None)
  Receive Date: 20120402
  Receipt Date: 20090526
  Transmission Date: 20120825
  Serious: Yes (Other)
  Sender: FDA-Public Use
  Company Number: US-GLAXOSMITHKLINE-A0789358A

PATIENT
  Age: 76 Year
  Sex: Female
  Weight: 80.5 kg

DRUGS (9)
  1. AVAPRO [Concomitant]
  2. NORVASC [Concomitant]
  3. LIPITOR [Concomitant]
  4. CLONIDINE [Concomitant]
  5. ADVAIR DISKUS 100/50 [Concomitant]
  6. AVANDIA [Suspect]
     Indication: DIABETES MELLITUS
     Dosage: 8MG PER DAY
     Route: 048
     Dates: end: 20070509
  7. JANUVIA [Concomitant]
  8. LEXAPRO [Concomitant]
  9. INSULIN [Concomitant]

REACTIONS (5)
  - RENAL IMPAIRMENT [None]
  - OEDEMA PERIPHERAL [None]
  - ATRIAL FIBRILLATION [None]
  - RENAL INJURY [None]
  - HEART RATE IRREGULAR [None]
